FAERS Safety Report 17716256 (Version 3)
Quarter: 2020Q3

REPORT INFORMATION
  Report Type: Report from Study
  Country: None (occurrence: US)
  Receive Date: 20200428
  Receipt Date: 20200803
  Transmission Date: 20201102
  Serious: Yes (Hospitalization, Other)
  Sender: FDA-Public Use
  Company Number: US-ABBVIE-20K-163-3379820-00

PATIENT
  Sex: Female

DRUGS (6)
  1. HUMIRA [Suspect]
     Active Substance: ADALIMUMAB
     Indication: PSORIASIS
     Route: 058
     Dates: start: 202001, end: 20200316
  2. DILTIAZEM. [Concomitant]
     Active Substance: DILTIAZEM
     Indication: PRODUCT USED FOR UNKNOWN INDICATION
  3. NITROGLYCERIN. [Suspect]
     Active Substance: NITROGLYCERIN
     Indication: PRODUCT USED FOR UNKNOWN INDICATION
     Route: 065
  4. ATORVASTATIN [Concomitant]
     Active Substance: ATORVASTATIN
     Indication: BLOOD CHOLESTEROL INCREASED
  5. METOPROLOL. [Concomitant]
     Active Substance: METOPROLOL
     Indication: HYPERTENSION
  6. LOSARTAN. [Concomitant]
     Active Substance: LOSARTAN
     Indication: HYPERTENSION

REACTIONS (9)
  - Neuropathy peripheral [Unknown]
  - Oedema peripheral [Unknown]
  - Myocardial infarction [Unknown]
  - Deep vein thrombosis [Unknown]
  - Urinary tract infection [Unknown]
  - Coronary artery occlusion [Recovered/Resolved]
  - Weight increased [Unknown]
  - Hypertension [Unknown]
  - Gait disturbance [Unknown]

NARRATIVE: CASE EVENT DATE: 2020
